FAERS Safety Report 24301580 (Version 1)
Quarter: 2024Q3

REPORT INFORMATION
  Report Type: Spontaneous
  Country: BE (occurrence: BE)
  Receive Date: 20240910
  Receipt Date: 20240910
  Transmission Date: 20241016
  Serious: Yes (Death)
  Sender: TAKEDA
  Company Number: BE-TAKEDA-2024TUS088958

PATIENT
  Age: 7 Year
  Sex: Male

DRUGS (1)
  1. VPRIV [Suspect]
     Active Substance: VELAGLUCERASE ALFA
     Indication: Gaucher^s disease
     Dosage: UNK
     Route: 065

REACTIONS (1)
  - Disease progression [Fatal]
